FAERS Safety Report 7457686-7 (Version None)
Quarter: 2011Q2

REPORT INFORMATION
  Report Type: 
  Country: None (occurrence: None)
  Receive Date: 20110504
  Receipt Date: 20110427
  Transmission Date: 20111010
  Serious: Yes (Other)
  Sender: FDA-Public Use
  Company Number: US-ROCHE-749874

PATIENT
  Sex: Male
  Weight: 88.5 kg

DRUGS (2)
  1. ACCUTANE [Suspect]
     Route: 065
     Dates: start: 20040101, end: 20050101
  2. ACCUTANE [Suspect]
     Indication: ROSACEA
     Route: 065
     Dates: start: 20000101

REACTIONS (13)
  - COLITIS ISCHAEMIC [None]
  - RHEUMATOID ARTHRITIS [None]
  - DIVERTICULUM [None]
  - EMOTIONAL DISTRESS [None]
  - BLOOD CHOLESTEROL INCREASED [None]
  - INFLAMMATORY BOWEL DISEASE [None]
  - MYOCARDIAL INFARCTION [None]
  - INTESTINAL OBSTRUCTION [None]
  - CORONARY ARTERY DISEASE [None]
  - HAEMORRHOIDS [None]
  - GASTROINTESTINAL INJURY [None]
  - CATARACT [None]
  - COLITIS ULCERATIVE [None]
